FAERS Safety Report 23210631 (Version 1)
Quarter: 2023Q4

REPORT INFORMATION
  Report Type: Spontaneous
  Country: CA (occurrence: CA)
  Receive Date: 20231121
  Receipt Date: 20231121
  Transmission Date: 20240110
  Serious: Yes (Other)
  Sender: FDA-Public Use
  Company Number: CA-002147023-NVSC2023CA243821

PATIENT
  Age: 16 Year
  Sex: Male

DRUGS (9)
  1. GLYCOPYRROLATE\INDACATEROL\MOMETASONE FUROATE [Suspect]
     Active Substance: GLYCOPYRROLATE\INDACATEROL\MOMETASONE FUROATE
     Indication: Asthma
     Dosage: 150 MCG (UG) OF INDACATEROL ACETATE, 50 MCG (UG) OF GLYCOPYRRONIUM BROMIDE, 150 MCG (UG) MOMETASONE
     Route: 055
     Dates: start: 202306
  2. MONTELUKAST [Suspect]
     Active Substance: MONTELUKAST SODIUM
     Indication: Chronic spontaneous urticaria
     Dosage: 10 MG, QD
     Route: 048
     Dates: start: 2017
  3. ARIPIPRAZOLE [Concomitant]
     Active Substance: ARIPIPRAZOLE
     Indication: Anxiety
     Dosage: 1 DOSAGE FORM, QD
     Route: 045
     Dates: start: 2020
  4. BILASTINE [Concomitant]
     Active Substance: BILASTINE
     Indication: Chronic spontaneous urticaria
     Dosage: 1 DOSAGE FORM, QD
     Route: 065
  5. CONCERTA [Concomitant]
     Active Substance: METHYLPHENIDATE HYDROCHLORIDE
     Indication: Attention deficit hyperactivity disorder
     Dosage: 2 DOSAGE FORM, QD
     Route: 048
     Dates: start: 2013
  6. NASONEX [Concomitant]
     Active Substance: MOMETASONE FUROATE
     Indication: Product used for unknown indication
     Dosage: UNK UNK, PRN
     Route: 045
  7. RUPATADINE FUMARATE [Concomitant]
     Active Substance: RUPATADINE FUMARATE
     Indication: Chronic spontaneous urticaria
     Dosage: 5 DOSAGE FORM, QD
     Route: 048
     Dates: start: 2021
  8. SINGULAIR [Concomitant]
     Active Substance: MONTELUKAST SODIUM
     Indication: Asthma
     Dosage: 1 DOSAGE FORM, QD
     Route: 048
     Dates: start: 201701
  9. ZENHALE [Concomitant]
     Active Substance: FORMOTEROL FUMARATE\MOMETASONE FUROATE
     Indication: Asthma
     Dosage: 2 DOSAGE FORM, BID
     Route: 055
     Dates: start: 201701

REACTIONS (1)
  - Urticaria [Not Recovered/Not Resolved]

NARRATIVE: CASE EVENT DATE: 20231113
